FAERS Safety Report 15939861 (Version 4)
Quarter: 2019Q1

REPORT INFORMATION
  Report Type: Report from Study
  Country: CN (occurrence: CN)
  Receive Date: 20190208
  Receipt Date: 20190325
  Transmission Date: 20190417
  Serious: Yes (Hospitalization)
  Sender: FDA-Public Use
  Company Number: CN-PFIZER INC-2019051884

PATIENT
  Age: 64 Year
  Sex: Male
  Weight: 67.4 kg

DRUGS (1)
  1. CAMPTO [Suspect]
     Active Substance: IRINOTECAN
     Indication: NEOPLASM
     Dosage: 311.4 MG, INTRAVENONUSLY FOR 1.5H
     Route: 041
     Dates: start: 20190103, end: 20190103

REACTIONS (1)
  - Cardiac failure [Recovered/Resolved]

NARRATIVE: CASE EVENT DATE: 20190122
